FAERS Safety Report 6379862-7 (Version None)
Quarter: 2009Q3

REPORT INFORMATION
  Report Type: 
  Country: None (occurrence: None)
  Receive Date: 20090928
  Receipt Date: 20090917
  Transmission Date: 20100115
  Serious: No
  Sender: FDA-Public Use
  Company Number: US-B.I. PHARMACEUTICALS,INC./RIDGEFIELD-2009-BP-10986BP

PATIENT
  Age: 59 Year
  Sex: Male

DRUGS (6)
  1. COMBIVENT [Suspect]
     Indication: EMPHYSEMA
     Route: 055
     Dates: start: 20040101
  2. ADVAIR DISKUS 100/50 [Concomitant]
     Indication: EMPHYSEMA
  3. THEOPHYLLINE [Concomitant]
     Indication: EMPHYSEMA
  4. NEURONTIN [Concomitant]
     Indication: TEMPOROMANDIBULAR JOINT SYNDROME
  5. ALBUTEROL [Concomitant]
     Indication: EMPHYSEMA
  6. IPRATROPIUM BROMIDE [Concomitant]
     Indication: EMPHYSEMA

REACTIONS (3)
  - DYSGEUSIA [None]
  - HYPERTENSION [None]
  - HYPERVENTILATION [None]
